FAERS Safety Report 25663180 (Version 1)
Quarter: 2025Q3

REPORT INFORMATION
  Report Type: Spontaneous
  Country: US (occurrence: US)
  Receive Date: 20250811
  Receipt Date: 20250811
  Transmission Date: 20251020
  Serious: Yes (Hospitalization)
  Sender: NOVO NORDISK
  Company Number: US-NOVOPROD-1495199

PATIENT
  Age: 65 Year
  Sex: Male

DRUGS (2)
  1. WEGOVY [Suspect]
     Active Substance: SEMAGLUTIDE
     Indication: Coronary artery disease
     Dates: start: 20250724
  2. WEGOVY [Suspect]
     Active Substance: SEMAGLUTIDE
     Indication: Cardiac failure congestive
     Route: 058
     Dates: start: 202505, end: 20250707

REACTIONS (2)
  - Ankle arthroplasty [Recovering/Resolving]
  - Foot operation [Recovering/Resolving]

NARRATIVE: CASE EVENT DATE: 20250707
